FAERS Safety Report 4946898-X (Version None)
Quarter: 2006Q1

REPORT INFORMATION
  Report Type: 
  Country: None (occurrence: None)
  Receive Date: 20060317
  Receipt Date: 20060306
  Transmission Date: 20060701
  Serious: Yes (Disabling, Other)
  Sender: FDA-Public Use
  Company Number: US-JNJFOC-20040404350

PATIENT
  Sex: Male
  Weight: 49.9 kg

DRUGS (9)
  1. DURAGESIC-100 [Suspect]
     Route: 062
  2. DURAGESIC-100 [Suspect]
     Route: 062
  3. DURAGESIC-100 [Suspect]
     Route: 062
  4. COUMADIN [Concomitant]
     Indication: ANTICOAGULANT THERAPY
  5. AMIODARONE HCL [Concomitant]
     Indication: TACHYCARDIA
  6. DIGOXIN [Concomitant]
  7. TOPROL [Concomitant]
  8. ACTONEL [Concomitant]
     Indication: OSTEOPOROSIS
  9. ALPRAZOLAM [Concomitant]
     Indication: ANXIETY

REACTIONS (17)
  - ANXIETY [None]
  - ARTHRALGIA [None]
  - CONSTIPATION [None]
  - DEVICE FAILURE [None]
  - DIZZINESS [None]
  - DYSURIA [None]
  - HEART RATE INCREASED [None]
  - HYPERHIDROSIS [None]
  - INCONTINENCE [None]
  - INTESTINAL OBSTRUCTION [None]
  - LOSS OF CONSCIOUSNESS [None]
  - MUSCLE TWITCHING [None]
  - PERIPHERAL SENSORY NEUROPATHY [None]
  - PHARMACEUTICAL PRODUCT COMPLAINT [None]
  - THERAPEUTIC RESPONSE DECREASED [None]
  - TREMOR [None]
  - WEIGHT DECREASED [None]
